FAERS Safety Report 9474618 (Version 1)
Quarter: 2013Q3

REPORT INFORMATION
  Report Type: Report from Study
  Country: US (occurrence: US)
  Receive Date: 20130823
  Receipt Date: 20130823
  Transmission Date: 20140515
  Serious: Yes (Other)
  Sender: FDA-Public Use
  Company Number: US-ABBOTT-13P-163-1133477-00

PATIENT
  Sex: Female

DRUGS (13)
  1. HUMIRA [Suspect]
     Indication: CROHN^S DISEASE
     Dates: start: 20130204, end: 201306
  2. FEMHRT [Concomitant]
     Indication: HORMONE REPLACEMENT THERAPY
     Dosage: 1/5 DAILY
  3. AMBIEN [Concomitant]
     Indication: SLEEP DISORDER
     Dosage: QHS
  4. MELATONIN [Concomitant]
     Indication: SLEEP DISORDER
     Dosage: QHS
  5. LIPITOR [Concomitant]
     Indication: BLOOD CHOLESTEROL INCREASED
     Dosage: QHS
  6. NEXIUM [Concomitant]
     Indication: GASTROOESOPHAGEAL REFLUX DISEASE
  7. GABAPENTIN [Concomitant]
     Indication: NEURALGIA
  8. GABAPENTIN [Concomitant]
     Indication: SCIATICA
  9. PRISTIQ [Concomitant]
     Indication: DEPRESSION
     Dosage: QHS
  10. XANAX [Concomitant]
     Indication: ANXIETY
     Dosage: 0.5MG Q8H PRN
  11. FLEXERIL [Concomitant]
     Indication: MYALGIA
     Dosage: Q8H PRN
  12. FLEXERIL [Concomitant]
     Indication: MUSCLE SPASMS
  13. PREDNISONE [Concomitant]
     Indication: CROHN^S DISEASE

REACTIONS (3)
  - Hypophagia [Unknown]
  - Central venous catheterisation [Unknown]
  - Drug ineffective [Unknown]
